FAERS Safety Report 19874542 (Version 1)
Quarter: 2021Q3

REPORT INFORMATION
  Report Type: Spontaneous
  Country: US (occurrence: US)
  Receive Date: 20210923
  Receipt Date: 20210923
  Transmission Date: 20211014
  Serious: No
  Sender: FDA-Public Use
  Company Number: US-PFIZER INC-2021790484

PATIENT
  Age: 53 Year
  Sex: Female
  Weight: 81.65 kg

DRUGS (5)
  1. METHADONE [Concomitant]
     Active Substance: METHADONE HYDROCHLORIDE
     Indication: PAIN
     Dosage: 130 MG, DAILY
     Dates: start: 2018
  2. CLONIDINE. [Concomitant]
     Active Substance: CLONIDINE
     Indication: HYPERHIDROSIS
     Dosage: 0.1 MG, 2X/DAY
  3. PREMPRO [Suspect]
     Active Substance: ESTROGENS, CONJUGATED\MEDROXYPROGESTERONE ACETATE
     Indication: OESTROGEN REPLACEMENT THERAPY
     Dosage: 1 DF, DAILY(0.625MG/5 ONE TABLET DAILY)
     Route: 048
     Dates: start: 202101
  4. PREMPRO [Suspect]
     Active Substance: ESTROGENS, CONJUGATED\MEDROXYPROGESTERONE ACETATE
     Indication: HYSTERECTOMY
  5. CLONIDINE. [Concomitant]
     Active Substance: CLONIDINE
     Indication: MENOPAUSE

REACTIONS (6)
  - Hot flush [Unknown]
  - Product dose omission issue [Unknown]
  - Visual impairment [Unknown]
  - Product packaging issue [Unknown]
  - Hyperhidrosis [Unknown]
  - Drug ineffective [Unknown]
